FAERS Safety Report 9834990 (Version 1)
Quarter: 2014Q1

REPORT INFORMATION
  Report Type: Spontaneous
  Country: US (occurrence: US)
  Receive Date: 20140122
  Receipt Date: 20140122
  Transmission Date: 20141002
  Serious: No
  Sender: FDA-Public Use
  Company Number: US-BAUSCH-BL-2013-006174

PATIENT
  Sex: Male

DRUGS (1)
  1. ALAWAY (KETOTIFEN FUMARATE OPHTHALMIC SOLUTION) [Suspect]
     Indication: EYE IRRITATION
     Dosage: GTT; OPHTHALMIC
     Route: 047

REACTIONS (1)
  - Drug ineffective for unapproved indication [Unknown]
